FAERS Safety Report 9051493 (Version 1)
Quarter: 2013Q1

REPORT INFORMATION
  Report Type: Spontaneous
  Country: US (occurrence: US)
  Receive Date: 20130206
  Receipt Date: 20130206
  Transmission Date: 20140127
  Serious: No
  Sender: FDA-Public Use
  Company Number: US-ALLERGAN-1216001US

PATIENT
  Age: 69 Year
  Sex: Female

DRUGS (7)
  1. RESTASIS [Suspect]
     Indication: DRY EYE
     Dosage: 2 GTT, UNK
     Route: 047
     Dates: start: 201106
  2. RESTASIS [Suspect]
     Route: 047
  3. RANITIDINE [Concomitant]
     Indication: GASTROOESOPHAGEAL REFLUX DISEASE
     Dosage: UNK UNK, QD
     Route: 048
  4. LEVOTHYROXINE [Concomitant]
     Indication: HYPOTHYROIDISM
     Dosage: UNK UNK, QD
     Route: 048
  5. HYDROCHLOROTHIAZIDE [Concomitant]
     Indication: HYPERTENSION
     Dosage: UNK UNK, QD
     Route: 048
  6. LUBRICATING EYE DROPS [Concomitant]
     Indication: DRY EYE
     Dosage: UNK, PRN
     Route: 047
  7. ORAL STEROIDS [Concomitant]
     Indication: PAIN
     Dosage: UNK
     Route: 048
     Dates: start: 201206, end: 201207

REACTIONS (11)
  - Inappropriate schedule of drug administration [Unknown]
  - Vitreous floaters [Unknown]
  - Nervousness [Unknown]
  - Nervousness [Unknown]
  - Eye pain [Unknown]
  - Eye irritation [Recovered/Resolved]
  - Nausea [Unknown]
  - Eye pain [Not Recovered/Not Resolved]
  - Eye discharge [Not Recovered/Not Resolved]
  - Eye pain [Unknown]
  - Therapeutic response decreased [Unknown]
